FAERS Safety Report 10907452 (Version 1)
Quarter: 2015Q1

REPORT INFORMATION
  Report Type: Spontaneous
  Country: FR (occurrence: FR)
  Receive Date: 20150312
  Receipt Date: 20150312
  Transmission Date: 20150721
  Serious: Yes (Hospitalization)
  Sender: FDA-Public Use
  Company Number: FR-TEVA-546210ISR

PATIENT
  Age: 43 Year
  Sex: Female

DRUGS (2)
  1. PROPRANOLOL [Suspect]
     Active Substance: PROPRANOLOL\PROPRANOLOL HYDROCHLORIDE
     Dosage: CONTROLLED RELEASE
     Route: 048
  2. PARACETAMOL [Suspect]
     Active Substance: ACETAMINOPHEN
     Route: 048

REACTIONS (8)
  - Bradycardia [Unknown]
  - Overdose [Recovering/Resolving]
  - Liver injury [Recovering/Resolving]
  - Somnolence [Unknown]
  - Respiratory disorder [Unknown]
  - Toxicity to various agents [Recovering/Resolving]
  - Confusional state [Unknown]
  - Hypotension [Unknown]
